FAERS Safety Report 8559854-X (Version None)
Quarter: 2012Q3

REPORT INFORMATION
  Report Type: 
  Country: None (occurrence: None)
  Receive Date: 20120802
  Receipt Date: 20120725
  Transmission Date: 20120928
  Serious: Yes (Hospitalization)
  Sender: FDA-Public Use
  Company Number: JP-VERTEX PHARMACEUTICALS INC.-AE-2012-008972

PATIENT
  Age: 60 Year
  Sex: Male

DRUGS (10)
  1. TELAVIC (TELAPREVIR) [Suspect]
     Indication: HEPATITIS C
     Route: 048
     Dates: start: 20120427, end: 20120531
  2. RIBAVIRIN [Concomitant]
     Route: 048
     Dates: start: 20120427, end: 20120531
  3. RIBAVIRIN [Concomitant]
     Route: 048
     Dates: start: 20120713
  4. ELPINAN [Concomitant]
     Route: 048
  5. FEBURIC [Concomitant]
     Route: 048
     Dates: start: 20120502, end: 20120621
  6. PEGINTERFERON ALFA-2B [Concomitant]
     Route: 058
     Dates: start: 20120427
  7. ALLOPURINOL [Concomitant]
     Route: 048
     Dates: end: 20120501
  8. FULMETA [Concomitant]
  9. TELAVIC (TELAPREVIR) [Suspect]
     Route: 048
     Dates: start: 20120601, end: 20120719
  10. RIBAVIRIN [Concomitant]
     Route: 048
     Dates: start: 20120601, end: 20120712

REACTIONS (1)
  - DECREASED APPETITE [None]
